FAERS Safety Report 20430428 (Version 1)
Quarter: 2022Q1

REPORT INFORMATION
  Report Type: Report from Study
  Country: FR (occurrence: FR)
  Receive Date: 20220204
  Receipt Date: 20220204
  Transmission Date: 20220423
  Serious: Yes (Hospitalization)
  Sender: FDA-Public Use
  Company Number: FR-SERVIER-S20007505

PATIENT

DRUGS (6)
  1. PEGASPARGASE [Suspect]
     Active Substance: PEGASPARGASE
     Indication: Acute lymphocytic leukaemia
     Dosage: 300 IU D15
     Route: 042
     Dates: start: 20200302, end: 20200302
  2. METHOTREXATE [Suspect]
     Active Substance: METHOTREXATE
     Indication: Acute lymphocytic leukaemia
     Dosage: 3600 MG D8
     Route: 042
     Dates: start: 20200512
  3. METHOTREXATE [Suspect]
     Active Substance: METHOTREXATE
     Dosage: 12 MG D9
     Route: 037
     Dates: start: 20200513
  4. MERCAPTOPURINE [Suspect]
     Active Substance: MERCAPTOPURINE
     Indication: Acute lymphocytic leukaemia
     Dosage: 18 MG D1-D56
     Route: 048
     Dates: start: 20200427
  5. BACTRIM [Concomitant]
     Active Substance: SULFAMETHOXAZOLE\TRIMETHOPRIM
     Indication: Product used for unknown indication
     Dosage: 400 MG
     Route: 065
  6. TN UNSPECIFIED [Concomitant]
     Indication: Product used for unknown indication
     Dosage: 4 MG
     Route: 065

REACTIONS (1)
  - General physical health deterioration [Recovered/Resolved]

NARRATIVE: CASE EVENT DATE: 20200520
